FAERS Safety Report 7154272-3 (Version None)
Quarter: 2010Q4

REPORT INFORMATION
  Report Type: 
  Country: None (occurrence: None)
  Receive Date: 20101213
  Receipt Date: 20101201
  Transmission Date: 20110411
  Serious: Yes (Other)
  Sender: FDA-Public Use
  Company Number: US-PFIZER INC-2010162147

PATIENT
  Sex: Male
  Weight: 80.27 kg

DRUGS (5)
  1. LYRICA [Suspect]
     Indication: DIABETIC NEUROPATHY
     Dosage: 75 MG, 2X/DAY
     Route: 048
     Dates: start: 20060101
  2. METFORMIN [Concomitant]
     Dosage: UNK
  3. ACCUPRIL [Concomitant]
     Dosage: UNK
  4. HYDROCODONE [Concomitant]
     Dosage: 10/325 MG, UNK
  5. MORPHINE [Concomitant]
     Dosage: 30 MG, 4X/DAY

REACTIONS (2)
  - NEOPLASM MALIGNANT [None]
  - PAIN [None]
